FAERS Safety Report 18746864 (Version 1)
Quarter: 2021Q1

REPORT INFORMATION
  Report Type: Spontaneous
  Country: US (occurrence: US)
  Receive Date: 20210115
  Receipt Date: 20210115
  Transmission Date: 20210419
  Serious: No
  Sender: FDA-Public Use
  Company Number: US-PARI RESPIRATORY EQUIPMENT, INC.-2020PAR00050

PATIENT
  Sex: Female

DRUGS (2)
  1. PULMOZYME [Concomitant]
     Active Substance: DORNASE ALFA
  2. KITABIS PAK [Suspect]
     Active Substance: TOBRAMYCIN
     Dosage: 300/5 MG/ML (1 AMPULE) , 2X/DAY FOR 2 WEEKS ON, 2 WEEKS OFF

REACTIONS (1)
  - Nasopharyngitis [Unknown]

NARRATIVE: CASE EVENT DATE: 2020
